FAERS Safety Report 4429646-1 (Version None)
Quarter: 2004Q3

REPORT INFORMATION
  Report Type: 
  Country: None (occurrence: None)
  Receive Date: 20040819
  Receipt Date: 20040628
  Transmission Date: 20050211
  Serious: Yes (Hospitalization, Disabling)
  Sender: FDA-Public Use
  Company Number: US-MERCK-0406USA02595

PATIENT
  Age: 72 Year
  Sex: Female

DRUGS (7)
  1. VICODIN [Concomitant]
     Route: 065
  2. NEURONTIN [Concomitant]
     Route: 065
  3. AMARYL [Concomitant]
     Route: 065
  4. INSULIN [Concomitant]
     Route: 065
  5. TOPROL-XL [Concomitant]
     Route: 065
  6. ZOCOR [Suspect]
     Indication: BLOOD CHOLESTEROL INCREASED
     Route: 048
     Dates: start: 19970101, end: 20010101
  7. ZOCOR [Suspect]
     Route: 048
     Dates: start: 20010101, end: 20040201

REACTIONS (5)
  - ABDOMINAL DISTENSION [None]
  - DIABETES MELLITUS [None]
  - HEPATIC ENZYME INCREASED [None]
  - MEDICATION ERROR [None]
  - RENAL CELL CARCINOMA STAGE UNSPECIFIED [None]
